FAERS Safety Report 21433601 (Version 5)
Quarter: 2022Q4

REPORT INFORMATION
  Report Type: Report from Study
  Country: US (occurrence: US)
  Receive Date: 20221010
  Receipt Date: 20221128
  Transmission Date: 20230113
  Serious: No
  Sender: FDA-Public Use
  Company Number: US-NOVARTISTESTPH-NVSC2022US226928

PATIENT
  Sex: Female

DRUGS (2)
  1. SCEMBLIX [Suspect]
     Active Substance: ASCIMINIB HYDROCHLORIDE
     Indication: Chronic myeloid leukaemia
     Dosage: 40 MG, BID
     Route: 048
     Dates: start: 20220720
  2. SCEMBLIX [Suspect]
     Active Substance: ASCIMINIB HYDROCHLORIDE
     Indication: Cytogenetic analysis

REACTIONS (11)
  - Sinusitis [Unknown]
  - Malaise [Unknown]
  - Illness [Unknown]
  - Infection [Unknown]
  - Sinus congestion [Unknown]
  - Fatigue [Unknown]
  - Dizziness [Unknown]
  - Cough [Unknown]
  - Nausea [Unknown]
  - Arthralgia [Unknown]
  - Diarrhoea [Unknown]
